FAERS Safety Report 9221756 (Version 1)
Quarter: 2013Q2

REPORT INFORMATION
  Report Type: Spontaneous
  Country: US (occurrence: US)
  Receive Date: 20130410
  Receipt Date: 20130410
  Transmission Date: 20140414
  Serious: Yes (Other)
  Sender: FDA-Public Use
  Company Number: US-SANOFI-AVENTIS-2013SA036065

PATIENT
  Age: 68 Year
  Sex: Male

DRUGS (2)
  1. LANTUS [Suspect]
     Indication: DIABETES MELLITUS
     Dosage: DOSE:28 UNIT(S)
  2. NOVOLOG [Concomitant]
     Indication: DIABETES MELLITUS
     Dosage: DOSE: 10 TO 12 UNITS

REACTIONS (3)
  - Nasopharyngeal cancer [Unknown]
  - Thrombosis [Recovered/Resolved]
  - Scar [Unknown]
